FAERS Safety Report 15576451 (Version 1)
Quarter: 2018Q4

REPORT INFORMATION
  Report Type: Report from Study
  Country: None (occurrence: BR)
  Receive Date: 20181101
  Receipt Date: 20181101
  Transmission Date: 20190205
  Serious: Yes (Hospitalization)
  Sender: FDA-Public Use
  Company Number: BR-ABBVIE-18K-020-2535424-00

PATIENT
  Age: 36 Year
  Sex: Female
  Weight: 74 kg

DRUGS (6)
  1. FEMINA [Concomitant]
     Indication: CONTRACEPTION
  2. XEFO [Suspect]
     Active Substance: LORNOXICAM
     Indication: ARTHRITIS
     Route: 065
  3. NAPROXEN. [Concomitant]
     Active Substance: NAPROXEN
  4. HUMIRA [Suspect]
     Active Substance: ADALIMUMAB
     Indication: RHEUMATOID ARTHRITIS
     Route: 058
     Dates: start: 20170721, end: 20181007
  5. NAPROXEN. [Concomitant]
     Active Substance: NAPROXEN
     Indication: ARTHRITIS
  6. PRAMIL [Concomitant]
     Indication: MYALGIA

REACTIONS (10)
  - Arthralgia [Not Recovered/Not Resolved]
  - Pain [Unknown]
  - Intervertebral disc protrusion [Recovered/Resolved]
  - Intervertebral disc disorder [Unknown]
  - Sciatica [Recovered/Resolved]
  - Intervertebral disc displacement [Unknown]
  - Pain in extremity [Recovered/Resolved]
  - Dry skin [Recovering/Resolving]
  - Arthritis [Not Recovered/Not Resolved]
  - Therapeutic response shortened [Unknown]

NARRATIVE: CASE EVENT DATE: 201804
